FAERS Safety Report 4434140-8 (Version None)
Quarter: 2004Q3

REPORT INFORMATION
  Report Type: 
  Country: None (occurrence: None)
  Receive Date: 20040826
  Receipt Date: 20031114
  Transmission Date: 20050211
  Serious: Yes (Other)
  Sender: FDA-Public Use
  Company Number: PHBS2003CH12722

PATIENT
  Age: 53 Year
  Sex: Female

DRUGS (6)
  1. MIACALCIN [Suspect]
     Dosage: 400 IU/DAY
     Dates: start: 20031003, end: 20031006
  2. ENTUMIN [Suspect]
     Dosage: 60 MG/DAY, PRN
  3. TRAMAL [Suspect]
     Dosage: 200 MG/DAY
     Dates: end: 20031004
  4. NEXIUM [Suspect]
     Dosage: 40 MG/DAY
  5. ALDACTONE [Concomitant]
     Dosage: 100 MG/DAY
  6. OXAZEPAM [Concomitant]
     Dosage: 15 MG, PRN

REACTIONS (4)
  - CONFUSIONAL STATE [None]
  - DISORIENTATION [None]
  - SEDATION [None]
  - STUPOR [None]
